FAERS Safety Report 7469305-4 (Version None)
Quarter: 2011Q2

REPORT INFORMATION
  Report Type: 
  Country: None (occurrence: None)
  Receive Date: 20110510
  Receipt Date: 20110505
  Transmission Date: 20111010
  Serious: Yes (Hospitalization)
  Sender: FDA-Public Use
  Company Number: FR-PFIZER INC-2011096429

PATIENT
  Age: 86 Year
  Sex: Female

DRUGS (12)
  1. TARDYFERON [Concomitant]
     Dosage: UNK MG, UNK
     Route: 048
  2. BECLOMETHASONE [Concomitant]
     Dosage: UNK
  3. PHYSIOTENS [Concomitant]
     Dosage: 1 DF, 1X/DAY
     Route: 048
  4. ALDACTONE [Concomitant]
     Dosage: UNK MG, UNK
     Route: 048
  5. REPAGLINIDE [Concomitant]
     Dosage: UNK
  6. PREVISCAN [Suspect]
     Dosage: 0.5 DF, 1X/DAY
     Route: 048
     Dates: end: 20110108
  7. IKOREL [Concomitant]
     Dosage: 10 MG, 2X/DAY
     Route: 048
  8. LASIX [Concomitant]
     Dosage: 40 MG, 1X/DAY
     Route: 048
  9. FERROUS SULFATE [Concomitant]
     Dosage: UNK
  10. FLIXONASE [Concomitant]
     Dosage: UNK
  11. MEDROL [Suspect]
     Indication: BRONCHITIS
     Dosage: UNK
     Route: 048
     Dates: start: 20110107, end: 20110108
  12. HEMIGOXINE NATIVELLE [Concomitant]
     Dosage: 0.125 MG, 1X/DAY
     Route: 048

REACTIONS (4)
  - GASTROINTESTINAL HAEMORRHAGE [None]
  - INTERNATIONAL NORMALISED RATIO INCREASED [None]
  - ANAEMIA [None]
  - OVERDOSE [None]
